FAERS Safety Report 19091951 (Version 1)
Quarter: 2021Q2

REPORT INFORMATION
  Report Type: Spontaneous
  Country: US (occurrence: US)
  Receive Date: 20210405
  Receipt Date: 20210405
  Transmission Date: 20210717
  Serious: No
  Sender: FDA-Public Use
  Company Number: US-SA-2021SA100159

PATIENT

DRUGS (2)
  1. LANTUS [Suspect]
     Active Substance: INSULIN GLARGINE
     Dosage: UNK
  2. OZEMPIC [Suspect]
     Active Substance: SEMAGLUTIDE
     Dosage: UNK

REACTIONS (2)
  - Nausea [Unknown]
  - Abdominal pain upper [Recovered/Resolved]
